FAERS Safety Report 14285493 (Version 2)
Quarter: 2018Q1

REPORT INFORMATION
  Report Type: Spontaneous
  Country: US (occurrence: US)
  Receive Date: 20171214
  Receipt Date: 20180209
  Transmission Date: 20180509
  Serious: No
  Sender: FDA-Public Use
  Company Number: US-PFIZER INC-2017533350

PATIENT
  Age: 56 Year
  Sex: Female

DRUGS (1)
  1. LOMOTIL [Suspect]
     Active Substance: ATROPINE SULFATE\DIPHENOXYLATE HYDROCHLORIDE
     Indication: DIARRHOEA
     Dosage: 1 DF, AS NEEDED (1 TABLET TWICE A DAY AS NEEDED)
     Route: 048
     Dates: start: 20170612, end: 20171204

REACTIONS (1)
  - Constipation [Recovered/Resolved]

NARRATIVE: CASE EVENT DATE: 20171123
